FAERS Safety Report 7758506-3 (Version None)
Quarter: 2011Q3

REPORT INFORMATION
  Report Type: 
  Country: None (occurrence: None)
  Receive Date: 20110919
  Receipt Date: 20110914
  Transmission Date: 20111222
  Serious: Yes (Other)
  Sender: FDA-Public Use
  Company Number: AR-AMGEN-ARGSP2011041601

PATIENT
  Age: 46 Year
  Sex: Male
  Weight: 110 kg

DRUGS (2)
  1. ENBREL [Suspect]
     Indication: ANKYLOSING SPONDYLITIS
     Dosage: 50 MG, WEEKLY
     Route: 058
     Dates: start: 20100505, end: 20110815
  2. CLONAZEPAM [Concomitant]
     Dosage: UNK
     Route: 048

REACTIONS (2)
  - DECREASED IMMUNE RESPONSIVENESS [None]
  - BRONCHITIS [None]
